FAERS Safety Report 8577289-0 (Version None)
Quarter: 2012Q3

REPORT INFORMATION
  Report Type: 
  Country: None (occurrence: None)
  Receive Date: 20120807
  Receipt Date: 20120627
  Transmission Date: 20120928
  Serious: No
  Sender: FDA-Public Use
  Company Number: US-COVIDIEN/TYCO HEALTHCARE/MALLINCKRODT-T201202690

PATIENT

DRUGS (1)
  1. PENNSAID [Suspect]
     Dosage: UNK

REACTIONS (2)
  - BLISTER [None]
  - ABDOMINAL DISTENSION [None]
